FAERS Safety Report 14609771 (Version 1)
Quarter: 2018Q1

REPORT INFORMATION
  Report Type: Spontaneous
  Country: ZA (occurrence: ZA)
  Receive Date: 20180307
  Receipt Date: 20180307
  Transmission Date: 20180509
  Serious: Yes (Hospitalization)
  Sender: FDA-Public Use
  Company Number: ZA-PFIZER INC-2018090842

PATIENT
  Age: 66 Year
  Sex: Female

DRUGS (11)
  1. BE-TABS FOLIC ACID [Suspect]
     Active Substance: FOLIC ACID
     Dosage: 5 MG, UNK
  2. ESCITALOPRAM [Suspect]
     Active Substance: ESCITALOPRAM OXALATE
     Dosage: 10 MG, UNK
  3. BILOCOR [Suspect]
     Active Substance: BISOPROLOL FUMARATE
     Dosage: 5 MG, UNK
  4. FOXAIR [Suspect]
     Active Substance: FLUTICASONE PROPIONATE\SALMETEROL XINAFOATE
     Dosage: 25/250 MCG
  5. CELEBREX [Suspect]
     Active Substance: CELECOXIB
     Dosage: 100 MG, UNK
  6. AMLOC (AMLODIPINE BESILATE) [Suspect]
     Active Substance: AMLODIPINE BESYLATE
     Dosage: 5 MG, UNK
  7. FORVENT [Suspect]
     Active Substance: TIOTROPIUM BROMIDE
     Dosage: 18 MCH
  8. IPVENT HFA [Suspect]
     Active Substance: IPRATROPIUM BROMIDE
     Dosage: 40 UCG
  9. TAMBOCOR [Suspect]
     Active Substance: FLECAINIDE ACETATE
     Dosage: 100 MG, UNK
  10. BE-TABS PREDNISONE [Suspect]
     Active Substance: PREDNISONE
     Dosage: 5 MG, UNK
  11. SYMBICORD [Suspect]
     Active Substance: BUDESONIDE\FORMOTEROL
     Dosage: 160 UG, UNK

REACTIONS (1)
  - Cerebrovascular accident [Unknown]
